FAERS Safety Report 19114960 (Version 1)
Quarter: 2021Q2

REPORT INFORMATION
  Report Type: Spontaneous
  Country: US (occurrence: US)
  Receive Date: 20210409
  Receipt Date: 20210409
  Transmission Date: 20210717
  Serious: Yes (Other)
  Sender: FDA-Public Use
  Company Number: US-FRESENIUS KABI-FK202103571

PATIENT
  Age: 71 Year
  Sex: Female

DRUGS (3)
  1. CISPLATIN (MANUFACTURER UNKNOWN) [Suspect]
     Active Substance: CISPLATIN
     Dosage: GIVEN IN 1L OF SODIUM?CHLORIDE EVERY 21 DAYS FOR SIX CYCLES
     Route: 033
     Dates: start: 20150209
  2. CISPLATIN (MANUFACTURER UNKNOWN) [Suspect]
     Active Substance: CISPLATIN
     Indication: OVARIAN CANCER RECURRENT
     Dosage: GIVEN IN 1L OF SODIUM?CHLORIDE EVERY 21 DAYS FOR SIX CYCLES
     Route: 033
     Dates: start: 20141229
  3. PACLITAXEL. [Concomitant]
     Active Substance: PACLITAXEL
     Indication: OVARIAN CANCER RECURRENT
     Dosage: PACLITAXEL IN SODIUM?CHLORIDE [NORMAL SALINE] EVERY 21 DAYS, FOR 6 CYCLE WAS ADMINISTERED OVER 3 HOU
     Route: 065
     Dates: start: 20141229

REACTIONS (2)
  - Hypomagnesaemia [Not Recovered/Not Resolved]
  - Acute kidney injury [Not Recovered/Not Resolved]
